FAERS Safety Report 22069768 (Version 2)
Quarter: 2023Q1

REPORT INFORMATION
  Report Type: Spontaneous
  Country: GB (occurrence: GB)
  Receive Date: 20230307
  Receipt Date: 20230320
  Transmission Date: 20230417
  Serious: Yes (Other)
  Sender: FDA-Public Use
  Company Number: None

PATIENT
  Age: 70 Year
  Sex: Male
  Weight: 104 kg

DRUGS (19)
  1. BUPRENORPHINE [Suspect]
     Active Substance: BUPRENORPHINE
     Indication: Product used for unknown indication
     Dosage: UNK
     Route: 065
     Dates: start: 20161202
  2. ASPIRIN [Concomitant]
     Active Substance: ASPIRIN
     Dosage: 1 DOSAGE FORM, QD (TAKE ONE DAILY)
     Route: 065
     Dates: start: 20170907
  3. ATORVASTATIN [Concomitant]
     Active Substance: ATORVASTATIN
     Dosage: 1 DOSAGE FORM, QD (TAKE ONE TABLET AT NIGHT)
     Route: 065
     Dates: start: 20170530
  4. BETAMETHASONE DIPROPIONATE [Concomitant]
     Active Substance: BETAMETHASONE DIPROPIONATE
     Dosage: 2 GTT DROPS, QW (OFF LICENCE USE 2 DROPS TO EACH EAR ONCE WEEKLY)
     Route: 065
     Dates: start: 20230120
  5. BETAMETHASONE DIPROPIONATE [Concomitant]
     Active Substance: BETAMETHASONE DIPROPIONATE
     Dosage: 4 GTT DROPS, QW
     Route: 065
     Dates: start: 20230120
  6. BISOPROLOL [Concomitant]
     Active Substance: BISOPROLOL
     Dosage: 1 DOSAGE FORM, QD (TAKE ONE TABLET IN THE MORNING)
     Route: 065
     Dates: start: 20170530
  7. BUPRENORPHINE [Concomitant]
     Active Substance: BUPRENORPHINE
     Dosage: 1 DOSAGE FORM, QW (APPLY ONE PATCH TO DRY SKIN AND CHANGE ONCE A WEEK)
     Route: 065
     Dates: start: 20161130
  8. CIPROFLOXACIN [Concomitant]
     Active Substance: CIPROFLOXACIN
     Indication: Urinary tract infection
     Dosage: UNK (UPPER UTI, DIAGNOSED CLINICALLY EMPIRIC OPTIO)
     Route: 065
     Dates: start: 20221213, end: 20221220
  9. BECLOMETHASONE DIPROPIONATE [Concomitant]
     Active Substance: BECLOMETHASONE DIPROPIONATE
     Dosage: 1 SPRAY ONTO SKIN
     Route: 065
     Dates: start: 20131011
  10. COCODAMOL [Concomitant]
     Active Substance: ACETAMINOPHEN\CODEINE PHOSPHATE
     Dosage: UNK (TAKE 1 OR 2 CAPSULES 4 TIMES/DAY WHEN REQUIRED)
     Route: 065
     Dates: start: 20170826
  11. FLUTICASONE FUROATE [Concomitant]
     Active Substance: FLUTICASONE FUROATE
     Dosage: USE 2 SPRAYS EACH NOSTRIL ONCE DAILY
     Route: 065
     Dates: start: 20230120
  12. GABAPENTIN [Concomitant]
     Active Substance: GABAPENTIN
     Dosage: 1 DOSAGE FORM, TID (TAKE ONE CAPSULE THREE TIMES A DAY)
     Route: 065
     Dates: start: 20130419
  13. MEBEVERINE HYDROCHLORIDE [Concomitant]
     Active Substance: MEBEVERINE HYDROCHLORIDE
     Dosage: 1 DOSAGE FORM, TID (TAKE ONE TABLET THREE TIMES DAY)
     Route: 065
     Dates: start: 20161210
  14. MOVICOL [Concomitant]
     Active Substance: POLYETHYLENE GLYCOL 3350\POTASSIUM CHLORIDE\SODIUM BICARBONATE\SODIUM CHLORIDE
     Dosage: 1 DOSAGE FORM, BID (TAKE ONE SACHET UP TO TWICE A DAY WHEN REQUIRED)
     Route: 065
     Dates: start: 20170609
  15. OMEPRAZOLE [Concomitant]
     Active Substance: OMEPRAZOLE
     Dosage: 2 DOSAGE FORM, QD (TAKE TWO CAPSULE IN THE MORNING)
     Route: 065
     Dates: start: 20170530
  16. RAMIPRIL [Concomitant]
     Active Substance: RAMIPRIL
     Dosage: 1 DOSAGE FORM, QD (TAKE ONE DAILY)
     Route: 065
     Dates: start: 20170530
  17. SERTRALINE [Concomitant]
     Active Substance: SERTRALINE HYDROCHLORIDE
     Dosage: 1 DOSAGE FORM, QD (TAKE ONE TABLET EACH MORNING)
     Route: 065
     Dates: start: 20220725
  18. TAMSULOSIN HYDROCHLORIDE [Concomitant]
     Active Substance: TAMSULOSIN HYDROCHLORIDE
     Indication: Bladder disorder
     Dosage: 1 DOSAGE FORM, QD (TAKE ONE DAILY FOR BLADDER OUTFLOW SYMPTOMS)
     Route: 065
     Dates: start: 20220304
  19. CALCIUM CARBONATE\SODIUM ALGINATE\SODIUM BICARBONATE [Concomitant]
     Active Substance: CALCIUM CARBONATE\SODIUM ALGINATE\SODIUM BICARBONATE
     Dosage: 80 MILLILITER, QD, 20 MILLILITRE, 4/DAY , 10-20MLS FOUR TIMES DAILY AS NEEDED
     Route: 065
     Dates: start: 20211012

REACTIONS (2)
  - Nightmare [Unknown]
  - Abnormal dreams [Unknown]
